FAERS Safety Report 8848114 (Version 1)
Quarter: 2012Q4

REPORT INFORMATION
  Report Type: 
  Country: US (occurrence: US)
  Receive Date: 20121018
  Receipt Date: 20121018
  Transmission Date: 20130627
  Serious: Yes (Other)
  Sender: FDA-Public Use
  Company Number: US-ROCHE-1138630

PATIENT
  Sex: Male

DRUGS (6)
  1. NUTROPIN [Suspect]
     Indication: BODY HEIGHT BELOW NORMAL
     Route: 058
  2. DEPAKOTE [Concomitant]
     Route: 065
  3. DEXEDRINE [Concomitant]
  4. SUPRAX [Concomitant]
  5. CLONIDINE [Concomitant]
  6. CYLERT [Concomitant]

REACTIONS (7)
  - Convulsion [Unknown]
  - Cardiac murmur [Unknown]
  - Fatigue [Unknown]
  - Ear pain [Unknown]
  - Oropharyngeal pain [Unknown]
  - Growth retardation [Unknown]
  - Abnormal behaviour [Unknown]
